FAERS Safety Report 7225337-2 (Version None)
Quarter: 2011Q1

REPORT INFORMATION
  Report Type: 
  Country: None (occurrence: None)
  Receive Date: 20110104
  Receipt Date: 20101229
  Transmission Date: 20110831
  Serious: Yes (Other)
  Sender: FDA-Public Use
  Company Number: 023140

PATIENT
  Sex: Female

DRUGS (2)
  1. CIMZIA [Suspect]
     Indication: PSORIATIC ARTHROPATHY
     Dosage: SUBCUTANEOUS
     Route: 058
     Dates: start: 20100601, end: 20100601
  2. CALCIGRAN /00434901/ [Concomitant]

REACTIONS (3)
  - INJECTION SITE EXTRAVASATION [None]
  - BRONCHITIS [None]
  - RASH GENERALISED [None]
